FAERS Safety Report 6380503-3 (Version None)
Quarter: 2009Q3

REPORT INFORMATION
  Report Type: 
  Country: None (occurrence: None)
  Receive Date: 20090924
  Receipt Date: 20090914
  Transmission Date: 20100115
  Serious: No
  Sender: FDA-Public Use
  Company Number: 2009010075

PATIENT
  Sex: Male

DRUGS (14)
  1. FENTORA [Suspect]
     Indication: COMPLEX REGIONAL PAIN SYNDROME
     Dosage: 600 MCG, BU
     Route: 002
  2. FENTORA [Suspect]
     Indication: INTERVERTEBRAL DISC DEGENERATION
     Dosage: 600 MCG, BU
     Route: 002
  3. KADIAN [Concomitant]
  4. DILAUDID [Concomitant]
  5. CLONAZEPAM [Concomitant]
  6. VITAMINS (ASCORBIC ACID, PYRIDOXINE HYDROCHLORIDE, COLECALCIFEROL, CYA [Concomitant]
  7. FOSAMAX (ALENDRONATE SODIUIM) [Concomitant]
  8. CLONIDINE [Concomitant]
  9. NEXIUM [Concomitant]
  10. OXYCODONE HCL [Concomitant]
  11. SENNA (SENNA ALEXANDRINA) [Concomitant]
  12. ANDROGEL [Concomitant]
  13. MORPHINE SULFATE [Concomitant]
  14. LIDODERM [Concomitant]

REACTIONS (2)
  - DRUG PRESCRIBING ERROR [None]
  - WRONG TECHNIQUE IN DRUG USAGE PROCESS [None]
